FAERS Safety Report 11711034 (Version 1)
Quarter: 2015Q4

REPORT INFORMATION
  Report Type: Spontaneous
  Country: US (occurrence: US)
  Receive Date: 20151104
  Receipt Date: 20151104
  Transmission Date: 20160304
  Serious: No
  Sender: FDA-Public Use
  Company Number: US-ELI_LILLY_AND_COMPANY-US201105001329

PATIENT
  Age: 70 Year
  Sex: Female

DRUGS (1)
  1. FORTEO [Suspect]
     Active Substance: TERIPARATIDE
     Indication: OSTEOPOROSIS
     Dosage: 20 UG, QD
     Route: 065
     Dates: start: 201104, end: 20110430

REACTIONS (8)
  - Cough [Unknown]
  - Contusion [Unknown]
  - Head injury [Unknown]
  - Nasal discomfort [Unknown]
  - Spinal pain [Unknown]
  - Influenza [Unknown]
  - Fall [Unknown]
  - Body temperature increased [Unknown]

NARRATIVE: CASE EVENT DATE: 20110429
